FAERS Safety Report 12271696 (Version 1)
Quarter: 2016Q2

REPORT INFORMATION
  Report Type: Spontaneous
  Country: US (occurrence: None)
  Receive Date: 20160414
  Receipt Date: 20160414
  Transmission Date: 20160815
  Serious: Yes (Hospitalization)
  Sender: FDA-Public Use
  Company Number: None

PATIENT
  Age: 65 Year
  Sex: Female
  Weight: 94.5 kg

DRUGS (1)
  1. TEMOZOLOMIDE. [Suspect]
     Active Substance: TEMOZOLOMIDE
     Dates: end: 20160308

REACTIONS (3)
  - Tumour necrosis [None]
  - Oedema [None]
  - Radiation necrosis [None]

NARRATIVE: CASE EVENT DATE: 20160405
